FAERS Safety Report 12534821 (Version 4)
Quarter: 2016Q4

REPORT INFORMATION
  Report Type: Report from Study
  Country: JP (occurrence: JP)
  Receive Date: 20160707
  Receipt Date: 20161125
  Transmission Date: 20170207
  Serious: Yes (Hospitalization)
  Sender: FDA-Public Use
  Company Number: JP-AMGEN-JPNCT2016086755

PATIENT
  Age: 74 Year
  Sex: Male

DRUGS (19)
  1. CARFILZOMIB [Suspect]
     Active Substance: CARFILZOMIB
     Indication: PLASMA CELL MYELOMA
     Dosage: 112 MG, PER CHEMO REGIM
     Route: 042
     Dates: start: 20160616, end: 20160630
  2. KN NO.1 [Concomitant]
     Dosage: 1000-2000 ML, UNK
     Route: 042
     Dates: start: 20160607, end: 20160702
  3. JANUVIA [Concomitant]
     Active Substance: SITAGLIPTIN PHOSPHATE
     Dosage: 25-50 MG, UNK
     Route: 048
     Dates: start: 20120211
  4. POTASSIUM CHLORIDE. [Concomitant]
     Active Substance: POTASSIUM CHLORIDE
     Dosage: 20 MEQ AND 1200-1800 MG, UNK
     Dates: start: 20160604, end: 20160730
  5. VENOGLOBULIN IH [Concomitant]
     Active Substance: HUMAN IMMUNOGLOBULIN G
     Dosage: 12.5 G, UNK
     Route: 042
     Dates: start: 20160624, end: 20160624
  6. MIYA-BM [Concomitant]
     Active Substance: CLOSTRIDIUM BUTYRICUM SPORES STRAIN M-55
     Dosage: 2 UNK, UNK
     Route: 048
     Dates: start: 20160625, end: 20160627
  7. LOSARTAN POTASSIUM. [Concomitant]
     Active Substance: LOSARTAN POTASSIUM
     Dosage: 50 MG, UNK
     Route: 048
     Dates: start: 20160421, end: 20160708
  8. MAXIPIME [Concomitant]
     Active Substance: CEFEPIME HYDROCHLORIDE
     Dosage: 0.5-1 G, UNK
     Route: 042
     Dates: start: 20160625
  9. DEXAMETHASONE. [Suspect]
     Active Substance: DEXAMETHASONE
     Indication: PLASMA CELL MYELOMA
     Dosage: 40 MG, PER CHEMO REGIM
     Route: 048
     Dates: start: 20160616, end: 20160630
  10. LANSOPRAZOLE. [Concomitant]
     Active Substance: LANSOPRAZOLE
     Dosage: 15 MG, UNK
     Route: 048
     Dates: start: 20160421
  11. SULFAMETHOXAZOLE AND TRIMETHOPRIM [Concomitant]
     Active Substance: SULFAMETHOXAZOLE\TRIMETHOPRIM
     Dosage: 1 UNK, UNK
     Route: 048
     Dates: start: 20150813, end: 20160708
  12. OXYCONTIN [Concomitant]
     Active Substance: OXYCODONE HYDROCHLORIDE
     Dosage: 5-10MG, UNK
     Route: 048
     Dates: start: 20111227, end: 20160630
  13. DECADRON (DEXAMETHASONE SODIUM PHOSPHATE) [Concomitant]
     Active Substance: DEXAMETHASONE SODIUM PHOSPHATE
     Dosage: 20 MG, UNK
     Route: 042
     Dates: start: 20160608, end: 20160719
  14. FUROSEMIDE. [Concomitant]
     Active Substance: FUROSEMIDE
     Indication: CARDIAC FAILURE CONGESTIVE
     Dosage: 40 MG, UNK
     Route: 042
     Dates: start: 20160701, end: 20160707
  15. MEYLON [Concomitant]
     Active Substance: SODIUM BICARBONATE
     Dosage: 40-80 ML, UNK
     Route: 042
     Dates: start: 20160607, end: 20160702
  16. NOVOLIN R [Concomitant]
     Active Substance: INSULIN HUMAN
     Dosage: 1-20 UNK, UNK
     Dates: start: 20160616, end: 20160717
  17. VALTREX [Concomitant]
     Active Substance: VALACYCLOVIR HYDROCHLORIDE
     Dosage: 500 MG, UNK
     Route: 048
     Dates: start: 20160614, end: 20160708
  18. HYDROCHLOROTHIAZIDE. [Concomitant]
     Active Substance: HYDROCHLOROTHIAZIDE
     Dosage: 12.5 MG, UNK
     Route: 048
     Dates: start: 20140903
  19. FEBURIC [Concomitant]
     Active Substance: FEBUXOSTAT
     Dosage: 10-20 MG, UNK
     Route: 048
     Dates: start: 20140901

REACTIONS (1)
  - Cardiac failure acute [Recovered/Resolved]

NARRATIVE: CASE EVENT DATE: 20160702
